FAERS Safety Report 17927552 (Version 1)
Quarter: 2020Q2

REPORT INFORMATION
  Report Type: Spontaneous
  Country: US (occurrence: US)
  Receive Date: 20200621
  Receipt Date: 20200621
  Transmission Date: 20200714
  Serious: Yes (Hospitalization)
  Sender: FDA-Public Use
  Company Number: None

PATIENT
  Age: 69 Year
  Sex: Male
  Weight: 90 kg

DRUGS (1)
  1. IRON DEXTRAN [Suspect]
     Active Substance: IRON DEXTRAN
     Indication: CARDIAC FAILURE CONGESTIVE
     Route: 042
     Dates: start: 20200528, end: 20200528

REACTIONS (4)
  - Respiratory failure [None]
  - Cardio-respiratory arrest [None]
  - Respiratory depression [None]
  - Anaphylactic reaction [None]

NARRATIVE: CASE EVENT DATE: 20200528
